FAERS Safety Report 25598552 (Version 1)
Quarter: 2025Q3

REPORT INFORMATION
  Report Type: Spontaneous
  Country: CN (occurrence: CN)
  Receive Date: 20250723
  Receipt Date: 20250723
  Transmission Date: 20251020
  Serious: Yes (Hospitalization)
  Sender: JIANGSU HENGRUI
  Company Number: CN-JIANGSU HENGRUI PHARMACEUTICALS CO., LTD.-H2025225073

PATIENT
  Age: 60 Year

DRUGS (4)
  1. PACLITAXEL [Suspect]
     Active Substance: PACLITAXEL
     Indication: Throat cancer
  2. CISPLATIN [Suspect]
     Active Substance: CISPLATIN
     Indication: Throat cancer
  3. TORIPALIMAB [Suspect]
     Active Substance: TORIPALIMAB
     Indication: Throat cancer
  4. CETUXIMAB [Suspect]
     Active Substance: CETUXIMAB
     Indication: Throat cancer

REACTIONS (4)
  - Vision blurred [Recovering/Resolving]
  - Pyrexia [Recovering/Resolving]
  - Chills [Recovering/Resolving]
  - Dermatitis exfoliative [Recovering/Resolving]
